FAERS Safety Report 5117337-3 (Version None)
Quarter: 2006Q3

REPORT INFORMATION
  Report Type: 
  Country: None (occurrence: None)
  Receive Date: 20060926
  Receipt Date: 20060905
  Transmission Date: 20061208
  Serious: Yes (Hospitalization)
  Sender: FDA-Public Use
  Company Number: US200609001092

PATIENT
  Age: 37 Year
  Sex: Female

DRUGS (3)
  1. FORTEO [Suspect]
     Indication: BLOOD CALCIUM DECREASED
     Dosage: 20 UG, 2/D, UNK
  2. ROCALTROL [Concomitant]
  3. VITAMIN D (ERGOCALCIFEROL0 [Concomitant]

REACTIONS (7)
  - BLOOD CALCIUM DECREASED [None]
  - BONE PAIN [None]
  - MEDICATION ERROR [None]
  - MUSCLE SPASMS [None]
  - OFF LABEL USE [None]
  - PRESCRIBED OVERDOSE [None]
  - TETANY [None]
